FAERS Safety Report 5597646-4 (Version None)
Quarter: 2008Q1

REPORT INFORMATION
  Report Type: 
  Country: None (occurrence: None)
  Receive Date: 20080116
  Receipt Date: 20080101
  Transmission Date: 20080703
  Serious: Yes (Other)
  Sender: FDA-Public Use
  Company Number: SPV1-2007-05018

PATIENT
  Age: 12 Year
  Sex: Male
  Weight: 46.4 kg

DRUGS (3)
  1. ADDERALL XR 10 [Suspect]
     Indication: ATTENTION DEFICIT/HYPERACTIVITY DISORDER
     Dosage: 30 MG, 1X/DAY:QD, ORAL
     Route: 048
     Dates: start: 20041010
  2. ADDERALL XR 10 [Suspect]
     Indication: OPPOSITIONAL DEFIANT DISORDER
     Dosage: 30 MG, 1X/DAY:QD, ORAL
     Route: 048
     Dates: start: 20041010
  3. FLUOXETINE [Concomitant]

REACTIONS (3)
  - GRIMACING [None]
  - OCULOGYRIC CRISIS [None]
  - PAIN [None]
